FAERS Safety Report 9959667 (Version 1)
Quarter: 2014Q1

REPORT INFORMATION
  Report Type: Spontaneous
  Country: US (occurrence: US)
  Receive Date: 20140305
  Receipt Date: 20140305
  Transmission Date: 20141002
  Serious: No
  Sender: FDA-Public Use
  Company Number: US-ABBVIE-13P-163-1101759-00

PATIENT
  Age: 56 Year
  Sex: Female
  Weight: 113.5 kg

DRUGS (9)
  1. HUMIRA [Suspect]
     Indication: RHEUMATOID ARTHRITIS
     Route: 058
     Dates: start: 201203, end: 201301
  2. METHOTREXATE [Suspect]
     Indication: RHEUMATOID ARTHRITIS
     Dosage: SIX 2.5MG TABS WEEKLY
     Route: 048
     Dates: start: 2011, end: 201303
  3. METHOTREXATE [Suspect]
     Dosage: FIVE 2.5MG TABS WEEKLY
     Route: 048
     Dates: start: 201303
  4. HYDROXYCHLOROQUINE [Concomitant]
     Indication: RHEUMATOID ARTHRITIS
  5. SIMVASTATIN [Concomitant]
     Indication: BLOOD CHOLESTEROL INCREASED
  6. PROZAC [Concomitant]
     Indication: DEPRESSION
  7. VITAMIN D [Concomitant]
     Indication: VITAMIN SUPPLEMENTATION
  8. CLONAZEPAM [Concomitant]
     Indication: RESTLESSNESS
     Dosage: AT NIGHT
  9. INVOKANA [Concomitant]
     Indication: BLOOD GLUCOSE INCREASED

REACTIONS (2)
  - Hepatic enzyme increased [Recovered/Resolved]
  - Sinusitis [Recovered/Resolved]
